FAERS Safety Report 7473462-3 (Version None)
Quarter: 2011Q1

REPORT INFORMATION
  Report Type: 
  Country: None (occurrence: None)
  Receive Date: 20110302
  Receipt Date: 20100813
  Transmission Date: 20110831
  Serious: Yes (Other)
  Sender: FDA-Public Use
  Company Number: 163-21880-10071497

PATIENT
  Age: 63 Year
  Sex: Male

DRUGS (15)
  1. REVLIMID [Suspect]
     Indication: MULTIPLE MYELOMA
     Dosage: 25 MG, DAILY X 21 DAYS, PO; 25 MG, QD X 21 DAYS OUT OF 28 DAYS, PO
     Route: 048
     Dates: start: 20090701
  2. REVLIMID [Suspect]
     Indication: AMYLOIDOSIS
     Dosage: 25 MG, DAILY X 21 DAYS, PO; 25 MG, QD X 21 DAYS OUT OF 28 DAYS, PO
     Route: 048
     Dates: start: 20090701
  3. REVLIMID [Suspect]
     Indication: MULTIPLE MYELOMA
     Dosage: 25 MG, DAILY X 21 DAYS, PO; 25 MG, QD X 21 DAYS OUT OF 28 DAYS, PO
     Route: 048
     Dates: start: 20091102
  4. REVLIMID [Suspect]
     Indication: AMYLOIDOSIS
     Dosage: 25 MG, DAILY X 21 DAYS, PO; 25 MG, QD X 21 DAYS OUT OF 28 DAYS, PO
     Route: 048
     Dates: start: 20091102
  5. SINGULAIR [Concomitant]
  6. NEXIUM [Concomitant]
  7. AMBIEN [Concomitant]
  8. FLOMAX [Concomitant]
  9. ADVAIR DISKUS 100/50 [Concomitant]
  10. BACTRIM [Concomitant]
  11. DEXAMETHASONE [Concomitant]
  12. ATIVAN [Concomitant]
  13. COUMADIN [Concomitant]
  14. SYNTHROID [Concomitant]
  15. NASOMET (MOMETASONE FUROATE) [Concomitant]

REACTIONS (3)
  - DYSPNOEA [None]
  - DIZZINESS [None]
  - HYPERVENTILATION [None]
